FAERS Safety Report 8376103-6 (Version None)
Quarter: 2012Q2

REPORT INFORMATION
  Report Type: 
  Country: None (occurrence: None)
  Receive Date: 20120522
  Receipt Date: 20120516
  Transmission Date: 20120825
  Serious: Yes (Hospitalization)
  Sender: FDA-Public Use
  Company Number: US-BAYER-2012-014798

PATIENT
  Age: 39 Year
  Sex: Female
  Weight: 72.56 kg

DRUGS (9)
  1. IBUPROFEN (ADVIL) [Concomitant]
  2. ZITHROMAX [Concomitant]
  3. HYDROCODONE [Concomitant]
     Indication: HEADACHE
     Dosage: UNK
     Dates: start: 20110101
  4. HYDROCODONE [Concomitant]
     Indication: DYSMENORRHOEA
  5. DROSPIRENONE AND ETHINYL ESTRADIOL [Suspect]
     Indication: DYSMENORRHOEA
  6. FLONASE [Concomitant]
     Indication: MULTIPLE ALLERGIES
     Dosage: UNK
     Dates: start: 20080101
  7. SYNTHROID [Concomitant]
     Indication: THYROID DISORDER
     Dosage: UNK
     Dates: start: 20020101
  8. CALCIUM CARBONATE [Concomitant]
     Indication: DYSPEPSIA
     Dosage: UNK
     Dates: start: 20090901
  9. DROSPIRENONE AND ETHINYL ESTRADIOL [Suspect]
     Indication: MENSTRUATION IRREGULAR
     Dosage: UNK
     Route: 048
     Dates: start: 20090301, end: 20090901

REACTIONS (6)
  - ABDOMINAL PAIN [None]
  - VOMITING [None]
  - CHEST PAIN [None]
  - PAIN [None]
  - GALLBLADDER DISORDER [None]
  - DIZZINESS [None]
